FAERS Safety Report 7518483-7 (Version None)
Quarter: 2011Q2

REPORT INFORMATION
  Report Type: 
  Country: None (occurrence: None)
  Receive Date: 20110602
  Receipt Date: 20110519
  Transmission Date: 20111010
  Serious: Yes (Death)
  Sender: FDA-Public Use
  Company Number: US-CELGENEUS-163-21880-11041000

PATIENT
  Sex: Female

DRUGS (4)
  1. VELCADE [Concomitant]
     Indication: LYMPHOMA
     Route: 051
     Dates: start: 20100727, end: 20110315
  2. RITUXIMAB [Concomitant]
     Indication: LYMPHOMA
     Route: 051
     Dates: start: 20100727, end: 20110221
  3. REVLIMID [Suspect]
     Dosage: 10 MILLIGRAM
     Route: 048
     Dates: start: 20110325
  4. REVLIMID [Suspect]
     Indication: MANTLE CELL LYMPHOMA RECURRENT
     Dosage: 5 MILLIGRAM
     Route: 048
     Dates: start: 20101108

REACTIONS (1)
  - CHRONIC OBSTRUCTIVE PULMONARY DISEASE [None]
